FAERS Safety Report 17991460 (Version 3)
Quarter: 2020Q3

REPORT INFORMATION
  Report Type: Spontaneous
  Country: PL (occurrence: PL)
  Receive Date: 20200707
  Receipt Date: 20200720
  Transmission Date: 20201103
  Serious: Yes (Hospitalization, Other)
  Sender: FDA-Public Use
  Company Number: NVSC2020PL188786

PATIENT
  Age: 16 Year
  Sex: Male

DRUGS (1)
  1. AMOXICILLIN. [Suspect]
     Active Substance: AMOXICILLIN
     Indication: UPPER RESPIRATORY TRACT INFECTION
     Dosage: UNK
     Route: 065

REACTIONS (12)
  - Oropharyngeal discomfort [Unknown]
  - Cough [Unknown]
  - Pneumothorax [Unknown]
  - Chest pain [Unknown]
  - Fibromatosis colli of infancy [Unknown]
  - Blood creatine phosphokinase increased [Unknown]
  - Subcutaneous emphysema [Recovered/Resolved]
  - Pneumomediastinum [Recovered/Resolved]
  - Product use in unapproved indication [Unknown]
  - Neck pain [Unknown]
  - Oropharyngeal pain [Unknown]
  - Acute interstitial pneumonitis [Unknown]
